FAERS Safety Report 16885014 (Version 2)
Quarter: 2019Q4

REPORT INFORMATION
  Report Type: Spontaneous
  Country: TW (occurrence: TW)
  Receive Date: 20191004
  Receipt Date: 20191025
  Transmission Date: 20200122
  Serious: Yes (Hospitalization, Other)
  Sender: FDA-Public Use
  Company Number: TW-BAYER-2019-175645

PATIENT
  Age: 79 Year
  Sex: Female

DRUGS (1)
  1. ADEMPAS [Suspect]
     Active Substance: RIOCIGUAT
     Dosage: 2.5 MG, TID
     Route: 048

REACTIONS (3)
  - Spinal pain [Recovering/Resolving]
  - Lumbar vertebral fracture [None]
  - Osteoporosis [None]

NARRATIVE: CASE EVENT DATE: 201909
